FAERS Safety Report 6064186-8 (Version None)
Quarter: 2009Q1

REPORT INFORMATION
  Report Type: 
  Country: None (occurrence: None)
  Receive Date: 20090204
  Receipt Date: 20090203
  Transmission Date: 20090719
  Serious: Yes (Hospitalization)
  Sender: FDA-Public Use
  Company Number: US-KINGPHARMUSA00001-K200900066

PATIENT
  Sex: Male

DRUGS (7)
  1. ALTACE [Suspect]
     Dosage: 2.5 MG, BID
     Route: 048
  2. ALTACE [Suspect]
     Dosage: 2.5 MG, BID
  3. PLAVIX [Suspect]
     Dosage: 75 MG, QD
     Route: 048
  4. WARFARIN SODIUM [Concomitant]
     Indication: HYPOKINESIA
     Dosage: 2.5 MG, UNK
     Route: 048
     Dates: start: 20081101
  5. SELOKEN                            /00376902/ [Concomitant]
     Dosage: 50 MG, QD
     Route: 048
  6. SIMVASTATIN [Concomitant]
     Dosage: 40 MG, QD
     Route: 048
  7. TROMBYL [Concomitant]
     Dosage: 75 MG, QD
     Route: 048

REACTIONS (11)
  - ACUTE MYOCARDIAL INFARCTION [None]
  - CARDIAC FAILURE [None]
  - CHEST PAIN [None]
  - CORONARY ARTERY OCCLUSION [None]
  - EJECTION FRACTION DECREASED [None]
  - GASTRIC DISORDER [None]
  - GENERAL PHYSICAL HEALTH DETERIORATION [None]
  - HEART RATE DECREASED [None]
  - HYPOTENSION [None]
  - NAUSEA [None]
  - VENTRICULAR HYPOKINESIA [None]
